FAERS Safety Report 6609903-0 (Version None)
Quarter: 2010Q1

REPORT INFORMATION
  Report Type: 
  Country: None (occurrence: None)
  Receive Date: 20100302
  Receipt Date: 20100226
  Transmission Date: 20100710
  Serious: Yes (Death, Other)
  Sender: FDA-Public Use
  Company Number: PHHY2010JP09619

PATIENT
  Age: 64 Year
  Sex: Male

DRUGS (2)
  1. CYCLOSPORINE [Suspect]
     Indication: BRONCHITIS
  2. STEROIDS NOS [Concomitant]

REACTIONS (5)
  - GASTROINTESTINAL HAEMORRHAGE [None]
  - HAEMOLYSIS [None]
  - OBLITERATIVE BRONCHIOLITIS [None]
  - RESPIRATORY DISORDER [None]
  - THROMBOTIC MICROANGIOPATHY [None]
